FAERS Safety Report 20894566 (Version 2)
Quarter: 2022Q3

REPORT INFORMATION
  Report Type: Spontaneous
  Country: JP (occurrence: JP)
  Receive Date: 20220531
  Receipt Date: 20220812
  Transmission Date: 20221027
  Serious: Yes (Death, Other)
  Sender: FDA-Public Use
  Company Number: JP-OTSUKA-2022_029294

PATIENT
  Age: 3 Year
  Sex: Female

DRUGS (5)
  1. BUSULFEX [Suspect]
     Active Substance: BUSULFAN
     Indication: Cord blood transplant therapy
     Dosage: 9 MG/KG
     Route: 041
  2. BUSULFEX [Suspect]
     Active Substance: BUSULFAN
     Indication: Premedication
  3. MYCOPHENOLATE MOFETIL [Suspect]
     Active Substance: MYCOPHENOLATE MOFETIL
     Indication: Acute graft versus host disease
     Dosage: UNK
     Route: 065
  4. MYCOPHENOLATE MOFETIL [Suspect]
     Active Substance: MYCOPHENOLATE MOFETIL
     Indication: Prophylaxis against graft versus host disease
     Dosage: UNK
     Route: 065
  5. CYCLOSPORINE [Suspect]
     Active Substance: CYCLOSPORINE
     Indication: Prophylaxis against graft versus host disease
     Dosage: UNK
     Route: 065

REACTIONS (4)
  - Multiple organ dysfunction syndrome [Fatal]
  - Haemophagocytic lymphohistiocytosis [Unknown]
  - Bacterial infection [Unknown]
  - Fungal infection [Unknown]
